FAERS Safety Report 18910510 (Version 1)
Quarter: 2021Q1

REPORT INFORMATION
  Report Type: Report from Study
  Country: FR (occurrence: FR)
  Receive Date: 20210218
  Receipt Date: 20210218
  Transmission Date: 20210420
  Serious: Yes (Other)
  Sender: FDA-Public Use
  Company Number: FR-DSJP-DSE-2021-104516

PATIENT
  Sex: Female

DRUGS (1)
  1. ENHERTU [Suspect]
     Active Substance: FAM-TRASTUZUMAB DERUXTECAN-NXKI
     Indication: BREAST CANCER
     Dosage: 1 DF, CYCLIC (ONCE PER 21 DAY CYCLE)
     Route: 042

REACTIONS (1)
  - Hepatocellular injury [Unknown]
